FAERS Safety Report 5205395-7 (Version None)
Quarter: 2007Q1

REPORT INFORMATION
  Report Type: 
  Country: None (occurrence: None)
  Receive Date: 20070108
  Receipt Date: 20061228
  Transmission Date: 20070707
  Serious: Yes (Hospitalization)
  Sender: FDA-Public Use
  Company Number: 2005BI015156

PATIENT
  Age: 50 Year
  Sex: Female

DRUGS (19)
  1. AVONEX [Suspect]
     Indication: MULTIPLE SCLEROSIS
     Dosage: 30 UG;QW;IM
     Route: 030
     Dates: start: 19380701, end: 20030101
  2. AVONEX [Suspect]
     Indication: MULTIPLE SCLEROSIS
     Dosage: 30 UG;QW;IM
     Route: 030
     Dates: start: 20031002, end: 20060925
  3. ZESTRIL [Concomitant]
  4. FLONASE [Concomitant]
  5. LASIX [Concomitant]
  6. ZANAFLEX [Concomitant]
  7. NEURONTIN [Concomitant]
  8. EFFEXOR XR [Concomitant]
  9. OMEPRAZOLE [Concomitant]
  10. ZOLOFT [Concomitant]
  11. XANAX [Concomitant]
  12. DARVOCET-N 100 [Concomitant]
  13. BUSPAR [Concomitant]
  14. VICODIN [Concomitant]
  15. KLOR-CON [Concomitant]
  16. CALCITRIOL [Concomitant]
  17. ADVAIR DISKUS 100/50 [Concomitant]
  18. ALBUTEROL [Concomitant]
  19. PROFERRIN [Concomitant]

REACTIONS (7)
  - CARDIAC FAILURE CONGESTIVE [None]
  - DIALYSIS [None]
  - GALLBLADDER DISORDER [None]
  - NUCLEAR MAGNETIC RESONANCE IMAGING BRAIN ABNORMAL [None]
  - PATHOGEN RESISTANCE [None]
  - PNEUMONIA STAPHYLOCOCCAL [None]
  - RENAL FAILURE [None]
